FAERS Safety Report 6557450-7 (Version None)
Quarter: 2010Q1

REPORT INFORMATION
  Report Type: 
  Country: None (occurrence: None)
  Receive Date: 20100129
  Receipt Date: 20100115
  Transmission Date: 20100710
  Serious: Yes (Hospitalization, Other)
  Sender: FDA-Public Use
  Company Number: US-ELI_LILLY_AND_COMPANY-US201001004854

PATIENT
  Sex: Female

DRUGS (1)
  1. FORTEO [Suspect]
     Indication: OSTEOPOROSIS
     Dosage: 20 UG, UNK
     Dates: start: 20080801

REACTIONS (6)
  - ARTHRALGIA [None]
  - BRONCHITIS VIRAL [None]
  - CATARACT [None]
  - FALL [None]
  - JOINT INJURY [None]
  - MALAISE [None]
